FAERS Safety Report 23416473 (Version 2)
Quarter: 2024Q1

REPORT INFORMATION
  Report Type: Spontaneous
  Country: JP (occurrence: JP)
  Receive Date: 20240118
  Receipt Date: 20240327
  Transmission Date: 20240410
  Serious: Yes (Other)
  Sender: FDA-Public Use
  Company Number: JP-DSJP-DSJ-2023-153769

PATIENT
  Sex: Female

DRUGS (1)
  1. ENHERTU [Suspect]
     Active Substance: FAM-TRASTUZUMAB DERUXTECAN-NXKI
     Indication: HER2 low breast cancer
     Dosage: 4.4 MG/KG, ONCE EVERY 3 WK
     Route: 041
     Dates: start: 20231222

REACTIONS (6)
  - Renal impairment [Not Recovered/Not Resolved]
  - Aspartate aminotransferase increased [Unknown]
  - Decreased appetite [Unknown]
  - Taste disorder [Recovering/Resolving]
  - Diarrhoea [Recovering/Resolving]
  - Underdose [Unknown]

NARRATIVE: CASE EVENT DATE: 20231222
